FAERS Safety Report 22007116 (Version 2)
Quarter: 2023Q2

REPORT INFORMATION
  Report Type: Spontaneous
  Country: IS (occurrence: IS)
  Receive Date: 20230217
  Receipt Date: 20230418
  Transmission Date: 20230722
  Serious: Yes (Other)
  Sender: FDA-Public Use
  Company Number: IS-TEVA-2023-IS-2855318

PATIENT
  Age: 81 Year
  Sex: Male

DRUGS (1)
  1. DICLOXACILLIN [Suspect]
     Active Substance: DICLOXACILLIN
     Indication: Product used for unknown indication
     Route: 048
     Dates: start: 202207

REACTIONS (2)
  - Bacterial infection [Unknown]
  - Recalled product administered [Unknown]
